FAERS Safety Report 7036099-6 (Version None)
Quarter: 2010Q4

REPORT INFORMATION
  Report Type: 
  Country: None (occurrence: None)
  Receive Date: 20101008
  Receipt Date: 20090929
  Transmission Date: 20110411
  Serious: No
  Sender: FDA-Public Use
  Company Number: US-BRISTOL-MYERS SQUIBB COMPANY-14800742

PATIENT
  Sex: Female

DRUGS (4)
  1. AVAPRO [Suspect]
  2. ZYBAN [Suspect]
     Dosage: 3-4 YR AGO
  3. ZYBAN [Suspect]
  4. LYRICA [Suspect]

REACTIONS (1)
  - VOMITING [None]
